FAERS Safety Report 24140633 (Version 3)
Quarter: 2024Q3

REPORT INFORMATION
  Report Type: Spontaneous
  Country: US (occurrence: US)
  Receive Date: 20240726
  Receipt Date: 20240919
  Transmission Date: 20241017
  Serious: Yes (Other)
  Sender: PFIZER
  Company Number: US-PFIZER INC-202300271433

PATIENT
  Age: 14 Year
  Sex: Male

DRUGS (1)
  1. BENEFIX [Suspect]
     Active Substance: COAGULATION FACTOR IX RECOMBINANT HUMAN\ISOPROPYL ALCOHOL
     Indication: Haemorrhage
     Dosage: 4500 IU, AS NEEDED (4500 I.U. +/- SLOW I.V. PUSH. PRN EVERY 12-24 HOURS)
     Route: 042

REACTIONS (3)
  - Haemorrhage [Unknown]
  - Joint injury [Unknown]
  - Prescription drug used without a prescription [Unknown]
